FAERS Safety Report 6439932-1 (Version None)
Quarter: 2009Q4

REPORT INFORMATION
  Report Type: 
  Country: None (occurrence: None)
  Receive Date: 20091113
  Receipt Date: 20091102
  Transmission Date: 20100525
  Serious: Yes (Other)
  Sender: FDA-Public Use
  Company Number: GB-PFIZER INC-2009202920

PATIENT
  Age: 55 Year
  Sex: Female
  Weight: 68.1 kg

DRUGS (5)
  1. CHAMPIX [Suspect]
     Indication: SMOKING CESSATION THERAPY
     Dosage: UNK
     Route: 048
     Dates: start: 20090306, end: 20090320
  2. ACETYLSALICYLIC ACID [Concomitant]
     Indication: ISCHAEMIC HEART DISEASE PROPHYLAXIS
     Dosage: UNK
     Route: 048
     Dates: start: 20081114
  3. ELLESTE-SOLO [Concomitant]
     Indication: MENOPAUSE
     Dosage: 1 MG, UNK
     Route: 048
     Dates: start: 20081114
  4. INSULIN [Concomitant]
     Indication: DIABETES MELLITUS
     Dosage: UNK
     Route: 058
     Dates: start: 20080521
  5. SIMVASTATIN [Concomitant]
     Indication: LIPIDS INCREASED
     Dosage: 40 MG, UNK
     Route: 048
     Dates: start: 20080226

REACTIONS (3)
  - DEPRESSED MOOD [None]
  - MOOD SWINGS [None]
  - SELF-INJURIOUS IDEATION [None]
